FAERS Safety Report 12980493 (Version 1)
Quarter: 2016Q4

REPORT INFORMATION
  Report Type: Spontaneous
  Country: US (occurrence: US)
  Receive Date: 20161128
  Receipt Date: 20161128
  Transmission Date: 20170207
  Serious: Yes (Life-Threatening, Hospitalization)
  Sender: FDA-Public Use
  Company Number: US-PFIZER INC-3082532

PATIENT
  Age: 34 Year
  Sex: Male

DRUGS (4)
  1. HCTZ [Concomitant]
     Active Substance: HYDROCHLOROTHIAZIDE
     Dosage: UNK
  2. ALLOPURINOL. [Concomitant]
     Active Substance: ALLOPURINOL
     Dosage: UNK
  3. PROPOFOL. [Suspect]
     Active Substance: PROPOFOL
     Indication: ENDOSCOPY UPPER GASTROINTESTINAL TRACT
     Dosage: UNK
     Route: 041
  4. FLUVASTATIN [Suspect]
     Active Substance: FLUVASTATIN SODIUM
     Dosage: UNK

REACTIONS (5)
  - Muscle necrosis [Recovered/Resolved]
  - Rhabdomyolysis [Recovered/Resolved]
  - Condition aggravated [Recovered/Resolved]
  - Propofol infusion syndrome [Recovered/Resolved]
  - Mitochondrial cytopathy [Recovered/Resolved]
